FAERS Safety Report 7315019-0 (Version None)
Quarter: 2011Q1

REPORT INFORMATION
  Report Type: 
  Country: None (occurrence: None)
  Receive Date: 20110225
  Receipt Date: 20100329
  Transmission Date: 20110831
  Serious: No
  Sender: FDA-Public Use
  Company Number: US-MYLANLABS-2010S1003918

PATIENT
  Age: 50 Year
  Sex: Female
  Weight: 99.79 kg

DRUGS (3)
  1. AMNESTEEM [Suspect]
     Indication: ACNE
     Route: 048
     Dates: end: 20100303
  2. CLARAVIS [Suspect]
     Indication: ACNE
     Route: 048
     Dates: start: 20100121
  3. ADVAIR DISKUS 100/50 [Concomitant]

REACTIONS (2)
  - HEADACHE [None]
  - VISION BLURRED [None]
